FAERS Safety Report 16783463 (Version 1)
Quarter: 2019Q3

REPORT INFORMATION
  Report Type: Spontaneous
  Country: GB (occurrence: GB)
  Receive Date: 20190907
  Receipt Date: 20190907
  Transmission Date: 20191005
  Serious: Yes (Life-Threatening)
  Sender: FDA-Public Use
  Company Number: GB-TEVA-2019-GB-1102786

PATIENT
  Age: 56 Year
  Sex: Female
  Weight: 89 kg

DRUGS (8)
  1. LAMOTRIGINE. [Concomitant]
     Active Substance: LAMOTRIGINE
     Dates: start: 20181213
  2. ATENOLOL. [Concomitant]
     Active Substance: ATENOLOL
     Dates: start: 20190429
  3. RAMIPRIL. [Concomitant]
     Active Substance: RAMIPRIL
     Dates: start: 20190315
  4. INDAPAMIDE. [Concomitant]
     Active Substance: INDAPAMIDE
     Dosage: EACH MORNING
     Dates: start: 20190712
  5. MIDAZOLAM MALEATE [Concomitant]
     Active Substance: MIDAZOLAM MALEATE
     Dosage: USE AS DIRECTED
     Dates: start: 20190624, end: 20190625
  6. LEVETIRACETAM. [Concomitant]
     Active Substance: LEVETIRACETAM
     Dates: start: 20181213
  7. CLOBAZAM. [Concomitant]
     Active Substance: CLOBAZAM
     Dosage: TAKE ONE OR TWO TABLETS FOUR TO SIX HOURLY AS R...
     Dates: start: 20181213
  8. DOXAZOSIN [Suspect]
     Active Substance: DOXAZOSIN MESYLATE
     Dates: start: 20190805

REACTIONS (1)
  - Hypotension [Recovering/Resolving]

NARRATIVE: CASE EVENT DATE: 20190806
